FAERS Safety Report 19200333 (Version 1)
Quarter: 2021Q2

REPORT INFORMATION
  Report Type: Spontaneous
  Country: US (occurrence: US)
  Receive Date: 20210430
  Receipt Date: 20210430
  Transmission Date: 20210717
  Serious: Yes (Hospitalization)
  Sender: FDA-Public Use
  Company Number: None

PATIENT
  Sex: Female

DRUGS (1)
  1. EPCLUSA [Suspect]
     Active Substance: SOFOSBUVIR\VELPATASVIR
     Indication: HEPATITIS C
     Dosage: OTHER DOSE:400?100 MG;?
     Route: 048
     Dates: start: 20210223

REACTIONS (5)
  - Urinary tract infection [None]
  - Pancreatitis [None]
  - Dehydration [None]
  - Headache [None]
  - Fatigue [None]
